FAERS Safety Report 22601232 (Version 1)
Quarter: 2023Q2

REPORT INFORMATION
  Report Type: Spontaneous
  Country: CN (occurrence: CN)
  Receive Date: 20230614
  Receipt Date: 20230614
  Transmission Date: 20230722
  Serious: Yes (Other)
  Sender: FDA-Public Use
  Company Number: None

PATIENT
  Age: 52 Year
  Sex: Female
  Weight: 55 kg

DRUGS (4)
  1. CYCLOPHOSPHAMIDE [Suspect]
     Active Substance: CYCLOPHOSPHAMIDE
     Indication: Breast cancer female
     Dosage: 850 MG, QD DILUTED WITH 0.9% OF 50 ML SODIUM CHLORIDE
     Route: 041
     Dates: start: 20230516, end: 20230516
  2. EPIRUBICIN HYDROCHLORIDE [Suspect]
     Active Substance: EPIRUBICIN HYDROCHLORIDE
     Indication: Breast cancer female
     Dosage: 130 MG, QD DILUTED WITH 0.9% OF 100 ML SODIUM CHLORIDE
     Route: 041
     Dates: start: 20230516, end: 20230516
  3. SODIUM CHLORIDE [Suspect]
     Active Substance: SODIUM CHLORIDE
     Indication: Medication dilution
     Dosage: 50 ML, QD USED TO DILUTE 850 MG CYCLOPHOSPHAMIDE
     Route: 041
     Dates: start: 20230516, end: 20230516
  4. SODIUM CHLORIDE [Suspect]
     Active Substance: SODIUM CHLORIDE
     Dosage: 100 ML, QD USED TO DILUTE 130 MG EPIRUBICIN HYDROCHLORIDE
     Route: 041
     Dates: start: 20230516, end: 20230516

REACTIONS (1)
  - White blood cell count decreased [Recovered/Resolved]

NARRATIVE: CASE EVENT DATE: 20230530
